FAERS Safety Report 17047263 (Version 1)
Quarter: 2019Q4

REPORT INFORMATION
  Report Type: Spontaneous
  Country: US (occurrence: US)
  Receive Date: 20191018
  Receipt Date: 20191018
  Transmission Date: 20200122
  Serious: No
  Sender: FDA-Public Use
  Company Number: None

PATIENT
  Age: 36 Year
  Sex: Female

DRUGS (1)
  1. COLISTIMETHATE INJ 150MG [Suspect]
     Active Substance: COLISTIMETHATE SODIUM
     Route: 055
     Dates: start: 201511

REACTIONS (3)
  - Exposure to communicable disease [None]
  - Transmission of an infectious agent via transplant [None]
  - Lung transplant [None]

NARRATIVE: CASE EVENT DATE: 20190909
